FAERS Safety Report 15249576 (Version 1)
Quarter: 2018Q3

REPORT INFORMATION
  Report Type: Spontaneous
  Country: JP (occurrence: JP)
  Receive Date: 20180807
  Receipt Date: 20180807
  Transmission Date: 20181010
  Serious: Yes (Other)
  Sender: FDA-Public Use
  Company Number: JP-PFIZER INC-2015SE37198

PATIENT
  Age: 76 Year
  Sex: Female

DRUGS (1)
  1. MEROPEN [Suspect]
     Active Substance: MEROPENEM
     Dosage: UNK
     Route: 042

REACTIONS (6)
  - Haemolytic anaemia [Unknown]
  - Pyrexia [Unknown]
  - Haemoglobinuria [Unknown]
  - Coombs test positive [Unknown]
  - Haptoglobin decreased [Unknown]
  - Jaundice [Unknown]
